FAERS Safety Report 17728432 (Version 1)
Quarter: 2020Q2

REPORT INFORMATION
  Report Type: Spontaneous
  Country: FR (occurrence: FR)
  Receive Date: 20200430
  Receipt Date: 20200430
  Transmission Date: 20200714
  Serious: Yes (Hospitalization)
  Sender: FDA-Public Use
  Company Number: FR-ASTRAZENECA-2020SE54599

PATIENT
  Age: 85 Year
  Sex: Female
  Weight: 63 kg

DRUGS (6)
  1. TERALITHE [Suspect]
     Active Substance: LITHIUM CARBONATE
     Indication: BIPOLAR DISORDER
     Route: 048
  2. MIANSERINE (HYDROCHLORIDE OF) [Concomitant]
  3. XEROQUEL LP [Suspect]
     Active Substance: QUETIAPINE FUMARATE
     Indication: BIPOLAR DISORDER
     Route: 048
  4. AMLOR [Concomitant]
     Active Substance: AMLODIPINE BESYLATE
  5. SERESTA [Concomitant]
     Active Substance: OXAZEPAM
  6. DEXERYL [Concomitant]

REACTIONS (2)
  - Urinary retention [Recovered/Resolved]
  - Acute kidney injury [Recovering/Resolving]

NARRATIVE: CASE EVENT DATE: 20200224
